FAERS Safety Report 25827357 (Version 1)
Quarter: 2025Q3

REPORT INFORMATION
  Report Type: Spontaneous
  Country: US (occurrence: US)
  Receive Date: 20250920
  Receipt Date: 20250920
  Transmission Date: 20251020
  Serious: Yes (Other)
  Sender: ALEXION PHARMACEUTICALS
  Company Number: US-AstraZeneca-CH-00953517A

PATIENT
  Sex: Male

DRUGS (3)
  1. FARXIGA [Suspect]
     Active Substance: DAPAGLIFLOZIN PROPANEDIOL
     Indication: Type 2 diabetes mellitus
     Route: 065
  2. FARXIGA [Suspect]
     Active Substance: DAPAGLIFLOZIN PROPANEDIOL
     Indication: Cardiac failure congestive
  3. FARXIGA [Suspect]
     Active Substance: DAPAGLIFLOZIN PROPANEDIOL
     Indication: Renal failure

REACTIONS (8)
  - Renal failure [Unknown]
  - Alcoholism [Unknown]
  - Loss of consciousness [Unknown]
  - Diabetic ketoacidosis [Unknown]
  - Decreased appetite [Unknown]
  - Weight decreased [Unknown]
  - Hypotonia [Unknown]
  - Back pain [Unknown]
